FAERS Safety Report 23575070 (Version 3)
Quarter: 2024Q3

REPORT INFORMATION
  Report Type: Spontaneous
  Country: US (occurrence: US)
  Receive Date: 20240228
  Receipt Date: 20240916
  Transmission Date: 20241016
  Serious: No
  Sender: SANOFI AVENTIS
  Company Number: US-SA-SAC20240226001542

PATIENT
  Age: 48 Year
  Sex: Female

DRUGS (18)
  1. DUPIXENT [Suspect]
     Active Substance: DUPILUMAB
     Indication: Asthma
     Dosage: 600 MG, 1X
     Route: 058
     Dates: start: 20240213, end: 20240213
  2. DUPIXENT [Suspect]
     Active Substance: DUPILUMAB
     Dosage: 300 MG, QOW
     Route: 058
     Dates: start: 2024
  3. PREDNISONE [Concomitant]
     Active Substance: PREDNISONE
  4. PREDNISONE [Concomitant]
     Active Substance: PREDNISONE
     Dosage: UNK
  5. ALBUTEROL SULFATE [Concomitant]
     Active Substance: ALBUTEROL SULFATE
  6. ALBUTEROL SULFATE [Concomitant]
     Active Substance: ALBUTEROL SULFATE
     Dosage: UNK
  7. FAMOTIDINE [Concomitant]
     Active Substance: FAMOTIDINE
  8. FAMOTIDINE [Concomitant]
     Active Substance: FAMOTIDINE
     Dosage: UNK
  9. FLONASE ALLERGY RELIEF [Concomitant]
     Active Substance: FLUTICASONE PROPIONATE
  10. IRBESARTAN [Concomitant]
     Active Substance: IRBESARTAN
  11. IRBESARTAN [Concomitant]
     Active Substance: IRBESARTAN
  12. MONTELUKAST [Concomitant]
     Active Substance: MONTELUKAST SODIUM
  13. MONTELUKAST [Concomitant]
     Active Substance: MONTELUKAST SODIUM
  14. ROFLUMILAST [Concomitant]
     Active Substance: ROFLUMILAST
  15. ROFLUMILAST [Concomitant]
     Active Substance: ROFLUMILAST
  16. TRELEGY ELLIPTA [Concomitant]
     Active Substance: FLUTICASONE FUROATE\UMECLIDINIUM BROMIDE\VILANTEROL TRIFENATATE
  17. TRELEGY ELLIPTA [Concomitant]
     Active Substance: FLUTICASONE FUROATE\UMECLIDINIUM BROMIDE\VILANTEROL TRIFENATATE
  18. ADULT MULTIVITAMIN [Concomitant]

REACTIONS (4)
  - Gastroenteritis viral [Unknown]
  - Quality of life decreased [Unknown]
  - Back pain [Unknown]
  - Product dose omission in error [Unknown]

NARRATIVE: CASE EVENT DATE: 20240101
